FAERS Safety Report 22153992 (Version 5)
Quarter: 2023Q4

REPORT INFORMATION
  Report Type: Spontaneous
  Country: US (occurrence: US)
  Receive Date: 20230330
  Receipt Date: 20231006
  Transmission Date: 20240109
  Serious: No
  Sender: FDA-Public Use
  Company Number: US-BRISTOL-MYERS SQUIBB COMPANY-2023-042390

PATIENT
  Age: 55 Year
  Sex: Female

DRUGS (1)
  1. ZEPOSIA [Suspect]
     Active Substance: OZANIMOD HYDROCHLORIDE
     Indication: Multiple sclerosis
     Dosage: ONGOING
     Route: 048
     Dates: start: 202206

REACTIONS (9)
  - Headache [Unknown]
  - Feeling abnormal [Unknown]
  - Gait disturbance [Unknown]
  - Memory impairment [Unknown]
  - Multiple sclerosis [Recovered/Resolved]
  - Dizziness [Unknown]
  - Fatigue [Unknown]
  - Pain [Unknown]
  - General physical health deterioration [Unknown]

NARRATIVE: CASE EVENT DATE: 20220601
